FAERS Safety Report 5114412-4 (Version None)
Quarter: 2006Q3

REPORT INFORMATION
  Report Type: 
  Country: None (occurrence: None)
  Receive Date: 20060731
  Receipt Date: 20060605
  Transmission Date: 20061208
  Serious: No
  Sender: FDA-Public Use
  Company Number: 2006PV015034

PATIENT
  Age: 73 Year
  Sex: Male
  Weight: 141.9759 kg

DRUGS (1)
  1. BYETTA [Suspect]
     Dosage: SC
     Route: 058

REACTIONS (1)
  - ACCIDENTAL NEEDLE STICK [None]
